FAERS Safety Report 22531550 (Version 2)
Quarter: 2023Q2

REPORT INFORMATION
  Report Type: Report from Study
  Country: US (occurrence: US)
  Receive Date: 20230607
  Receipt Date: 20230629
  Transmission Date: 20230721
  Serious: Yes (Other)
  Sender: FDA-Public Use
  Company Number: US-Merck Healthcare KGaA-9404138

PATIENT
  Age: 82 Year
  Sex: Male

DRUGS (10)
  1. TEPMETKO [Suspect]
     Active Substance: TEPOTINIB HYDROCHLORIDE
     Indication: Lung neoplasm malignant
     Route: 048
     Dates: start: 20230323, end: 20230506
  2. CALCIUM [Concomitant]
     Active Substance: CALCIUM
     Indication: Premedication
  3. VITAMIN B12 [Concomitant]
     Active Substance: CYANOCOBALAMIN
     Indication: Premedication
  4. METAMUCIL [Concomitant]
     Active Substance: PLANTAGO SEED
     Indication: Premedication
  5. MAGNESIUM [Concomitant]
     Active Substance: MAGNESIUM
     Indication: Premedication
  6. VITAMINS NOS [Concomitant]
     Active Substance: VITAMINS
     Indication: Premedication
  7. TAMSULOSIN [Concomitant]
     Active Substance: TAMSULOSIN
     Indication: Premedication
  8. LEVOTHYROXINE [Concomitant]
     Active Substance: LEVOTHYROXINE
     Indication: Premedication
  9. FENOFIBRATE [Concomitant]
     Active Substance: FENOFIBRATE
     Indication: Premedication
  10. OMEPRAZOLE [Concomitant]
     Active Substance: OMEPRAZOLE
     Indication: Premedication

REACTIONS (9)
  - Nephritis [Unknown]
  - Hypotension [Unknown]
  - Muscle spasms [Unknown]
  - Blister [Unknown]
  - Arthralgia [Unknown]
  - Myalgia [Unknown]
  - Fatigue [Unknown]
  - Decreased appetite [Unknown]
  - Peripheral swelling [Unknown]
